FAERS Safety Report 8852069 (Version 1)
Quarter: 2012Q4

REPORT INFORMATION
  Report Type: Spontaneous
  Country: US (occurrence: None)
  Receive Date: 20121019
  Receipt Date: 20121019
  Transmission Date: 20130627
  Serious: No
  Sender: FDA-Public Use
  Company Number: None

PATIENT

DRUGS (2)
  1. POTASSIUM CHLORIDE [Suspect]
  2. FUROSEMIDE [Suspect]

REACTIONS (3)
  - Product contamination microbial [None]
  - Aspergillosis [None]
  - Transmission of an infectious agent via product [None]
